FAERS Safety Report 7496087-2 (Version None)
Quarter: 2011Q2

REPORT INFORMATION
  Report Type: 
  Country: None (occurrence: None)
  Receive Date: 20110513
  Receipt Date: 20110505
  Transmission Date: 20111010
  Serious: Yes (Other)
  Sender: FDA-Public Use
  Company Number: TRP_07728_2011

PATIENT
  Weight: 66.6788 kg

DRUGS (2)
  1. PEG-INTRON [Suspect]
     Indication: HEPATITIS
     Dates: start: 20100604
  2. RIBASPHERE [Suspect]
     Indication: HEPATITIS
     Dates: start: 20100604

REACTIONS (10)
  - PLATELET COUNT DECREASED [None]
  - THINKING ABNORMAL [None]
  - TREMOR [None]
  - WEIGHT DECREASED [None]
  - VISION BLURRED [None]
  - RHINORRHOEA [None]
  - ASTHENIA [None]
  - WHITE BLOOD CELL COUNT DECREASED [None]
  - ANAEMIA [None]
  - SUICIDAL IDEATION [None]
